FAERS Safety Report 14985052 (Version 1)
Quarter: 2018Q2

REPORT INFORMATION
  Report Type: Spontaneous
  Country: CN (occurrence: CN)
  Receive Date: 20180607
  Receipt Date: 20180607
  Transmission Date: 20180711
  Serious: Yes (Other)
  Sender: FDA-Public Use
  Company Number: CN-ASTRAZENECA-2018SE74423

PATIENT

DRUGS (2)
  1. TICAGRELOR. [Suspect]
     Active Substance: TICAGRELOR
     Route: 048
  2. TICAGRELOR. [Suspect]
     Active Substance: TICAGRELOR
     Route: 048

REACTIONS (3)
  - Vascular stent thrombosis [Unknown]
  - Tachypnoea [Recovering/Resolving]
  - Dyspnoea [Unknown]
